FAERS Safety Report 18850479 (Version 1)
Quarter: 2021Q1

REPORT INFORMATION
  Report Type: Spontaneous
  Country: US (occurrence: US)
  Receive Date: 20210204
  Receipt Date: 20210204
  Transmission Date: 20210420
  Serious: Yes (Other)
  Sender: FDA-Public Use
  Company Number: NVSC2021US017175

PATIENT
  Sex: Female

DRUGS (1)
  1. NITROGLYCERIN. [Suspect]
     Active Substance: NITROGLYCERIN
     Indication: PRODUCT USED FOR UNKNOWN INDICATION
     Dosage: 4 MG
     Route: 065

REACTIONS (8)
  - Arteriosclerosis [Unknown]
  - Coronary artery occlusion [Unknown]
  - Angina pectoris [Unknown]
  - Coronary artery disease [Unknown]
  - Breast cancer stage III [Unknown]
  - Cardiomyopathy [Unknown]
  - Catheterisation cardiac [Unknown]
  - Blood cholesterol increased [Not Recovered/Not Resolved]
